FAERS Safety Report 10363312 (Version 2)
Quarter: 2014Q4

REPORT INFORMATION
  Report Type: Report from Study
  Country: JP (occurrence: JP)
  Receive Date: 20140805
  Receipt Date: 20141223
  Transmission Date: 20150528
  Serious: Yes (Other)
  Sender: FDA-Public Use
  Company Number: JP-BRISTOL-MYERS SQUIBB COMPANY-21254412

PATIENT
  Age: 64 Year
  Sex: Male
  Weight: 80 kg

DRUGS (13)
  1. FUROSEMIDE. [Concomitant]
     Active Substance: FUROSEMIDE
     Indication: CARDIAC FAILURE
     Dosage: 20 MG, QD
     Route: 048
     Dates: start: 20140315
  2. HALFDIGOXIN [Concomitant]
     Active Substance: DIGOXIN
     Dosage: HALFDIGOXIN-KY
     Route: 048
     Dates: start: 20140316
  3. SAMSCA [Concomitant]
     Active Substance: TOLVAPTAN
     Indication: CARDIAC FAILURE
     Dosage: 7.5 MG, QD
     Route: 048
     Dates: start: 20140319, end: 20140329
  4. ASPIRIN. [Concomitant]
     Active Substance: ASPIRIN
     Indication: MYOCARDIAL ISCHAEMIA
     Dosage: 100 MG, QD
     Route: 048
     Dates: start: 20140411
  5. CRESTOR [Concomitant]
     Active Substance: ROSUVASTATIN CALCIUM
     Indication: MYOCARDIAL ISCHAEMIA
     Dosage: 5 MG, QD
     Route: 048
     Dates: start: 20140411
  6. SPIRONOLACTONE. [Concomitant]
     Active Substance: SPIRONOLACTONE
     Indication: CARDIAC FAILURE
     Dosage: 12.5 MG, QD
     Route: 048
     Dates: start: 20140315
  7. ARTIST [Concomitant]
     Active Substance: CARVEDILOL
     Indication: LEFT VENTRICULAR DYSFUNCTION
     Dosage: 5 MG, QD
     Route: 048
     Dates: start: 20140315
  8. LANSOPRAZOLE. [Concomitant]
     Active Substance: LANSOPRAZOLE
     Indication: MYOCARDIAL ISCHAEMIA
     Dosage: 15 MG, QD
     Route: 048
     Dates: start: 20140411
  9. IMIDAPRIL HCL [Concomitant]
     Indication: CARDIAC FAILURE
     Dosage: 2.5 MG, QD
     Route: 048
     Dates: start: 20140315
  10. ETHYL ICOSAPENTATE [Concomitant]
     Active Substance: ETHYL ICOSAPENTATE
     Indication: MYOCARDIAL ISCHAEMIA
     Dosage: 1800 MG, QD
     Route: 048
     Dates: start: 20140411
  11. APIXABAN [Suspect]
     Active Substance: APIXABAN
     Indication: CEREBROVASCULAR ACCIDENT PROPHYLAXIS
     Dosage: 5 MG, BID
     Route: 048
     Dates: start: 20140315
  12. VASOLAN [Concomitant]
     Active Substance: VERAPAMIL HYDROCHLORIDE
     Dosage: 120 MG, QD
     Route: 048
     Dates: start: 20140325
  13. PIMOBENDAN [Concomitant]
     Active Substance: PIMOBENDAN
     Indication: LEFT VENTRICULAR DYSFUNCTION
     Dosage: 6 MG, QD
     Route: 048
     Dates: start: 20140324

REACTIONS (4)
  - Hepatic function abnormal [Unknown]
  - International normalised ratio increased [Unknown]
  - Cardiac failure [Unknown]
  - Renal impairment [Unknown]
